FAERS Safety Report 14167050 (Version 2)
Quarter: 2018Q1

REPORT INFORMATION
  Report Type: Spontaneous
  Country: GR (occurrence: GR)
  Receive Date: 20171107
  Receipt Date: 20180228
  Transmission Date: 20180508
  Serious: Yes (Life-Threatening, Hospitalization, Other)
  Sender: FDA-Public Use
  Company Number: GR-SA-2017SA212313

PATIENT
  Age: 57 Year
  Sex: Female

DRUGS (4)
  1. PAROXETINE. [Concomitant]
     Active Substance: PAROXETINE
     Indication: DEPRESSION
  2. BROMAZEPAM [Concomitant]
     Active Substance: BROMAZEPAM
     Indication: DEPRESSION
  3. ENOXAPARIN SODIUM. [Suspect]
     Active Substance: ENOXAPARIN SODIUM
     Indication: PROPHYLAXIS
     Route: 065
  4. CAFERGOT [Suspect]
     Active Substance: CAFFEINE\ERGOTAMINE TARTRATE
     Indication: MIGRAINE
     Route: 065

REACTIONS (13)
  - Systemic lupus erythematosus [Unknown]
  - Haemorrhagic infarction [Recovering/Resolving]
  - Aphasia [Unknown]
  - Confusional state [Unknown]
  - Visual field defect [Recovering/Resolving]
  - Pyrexia [Recovered/Resolved]
  - Antiphospholipid syndrome [Unknown]
  - Intracranial venous sinus thrombosis [Recovering/Resolving]
  - Heparin-induced thrombocytopenia [Unknown]
  - Aphasia [Recovering/Resolving]
  - Disorientation [Unknown]
  - White blood cell count increased [Unknown]
  - C-reactive protein [Unknown]
